FAERS Safety Report 6615527-1 (Version None)
Quarter: 2010Q1

REPORT INFORMATION
  Report Type: 
  Country: None (occurrence: None)
  Receive Date: 20100305
  Receipt Date: 20100201
  Transmission Date: 20100710
  Serious: No
  Sender: FDA-Public Use
  Company Number: US-BAYER-201011569BCC

PATIENT
  Sex: Female

DRUGS (2)
  1. ALEVE (CAPLET) [Suspect]
     Indication: BACK PAIN
     Dosage: AS USED: 220 MG  UNIT DOSE: 220 MG
     Dates: start: 20080101
  2. OXYCONTIN [Concomitant]
     Route: 065

REACTIONS (1)
  - ABDOMINAL DISTENSION [None]
